FAERS Safety Report 9989312 (Version 1)
Quarter: 2013Q4

REPORT INFORMATION
  Report Type: Spontaneous
  Country: BR (occurrence: None)
  Receive Date: 20131025
  Receipt Date: 20131025
  Transmission Date: 20140711
  Serious: Yes (Hospitalization)
  Sender: FDA-Public Use
  Company Number: 2013SA078294

PATIENT
  Age: 73 Year
  Sex: Female
  Weight: 110 kg

DRUGS (11)
  1. LANTUS [Suspect]
     Indication: TYPE 1 DIABETES MELLITUS
     Route: 058
     Dates: start: 2005
  2. APIDRA SOLOSTAR [Suspect]
     Indication: TYPE 1 DIABETES MELLITUS
     Route: 058
     Dates: start: 2013
  3. SOLOSTAR [Concomitant]
  4. CLIKSTAR [Concomitant]
  5. JANUMET [Concomitant]
  6. PURAN T4 [Concomitant]
  7. ROSUVASTATIN CALCIUM [Concomitant]
  8. LASIX [Concomitant]
  9. AAS [Concomitant]
  10. ZYLORIC [Concomitant]
  11. LOSARTAN [Concomitant]

REACTIONS (3)
  - Diabetic neuropathy [None]
  - Condition aggravated [None]
  - Local swelling [None]
